FAERS Safety Report 9266878 (Version 2)
Quarter: 2013Q3

REPORT INFORMATION
  Report Type: Spontaneous
  Country: US (occurrence: US)
  Receive Date: 20130502
  Receipt Date: 20130703
  Transmission Date: 20140515
  Serious: Yes (Hospitalization, Other)
  Sender: FDA-Public Use
  Company Number: US-BAYER-2013-052481

PATIENT
  Age: 70 Year
  Sex: Female
  Weight: 64.4 kg

DRUGS (8)
  1. BETASERON [Suspect]
     Indication: MULTIPLE SCLEROSIS
     Dosage: 0.3 MG, UNK
     Route: 058
     Dates: start: 2002
  2. ASPIRIN [Concomitant]
     Dosage: 81 MG, UNK
     Route: 048
  3. DOCUSATE [Concomitant]
     Dosage: 10 MG, UNK
     Route: 048
  4. GABAPENTIN [Concomitant]
     Dosage: 600 MG, UNK
     Route: 048
  5. MONTELUKAST [Concomitant]
     Dosage: 10 MG, UNK
     Route: 048
  6. PANTOPRAZOLE [Concomitant]
     Dosage: 40 MG, UNK
     Route: 048
  7. PRAVASTATIN [Concomitant]
     Dosage: 40 MG, UNK
     Route: 048
  8. SERTRALINE [Concomitant]
     Dosage: 25 MG, UNK
     Route: 048

REACTIONS (3)
  - Vascular operation [None]
  - Peripheral vascular disorder [None]
  - Pain [None]
